FAERS Safety Report 7438368-4 (Version None)
Quarter: 2011Q2

REPORT INFORMATION
  Report Type: 
  Country: None (occurrence: None)
  Receive Date: 20110426
  Receipt Date: 20110403
  Transmission Date: 20111010
  Serious: Yes (Hospitalization, Other)
  Sender: FDA-Public Use
  Company Number: US-BAYER-200936826NA

PATIENT
  Age: 14 Year
  Sex: Female
  Weight: 68.027 kg

DRUGS (8)
  1. YASMIN [Suspect]
     Indication: ACNE
  2. COUMADIN [Concomitant]
     Indication: DEEP VEIN THROMBOSIS
     Dosage: UNK
     Dates: start: 20040701, end: 20071001
  3. PROTONIX [Concomitant]
  4. PROVENTIL [Concomitant]
     Indication: ASTHMA EXERCISE INDUCED
     Dosage: UNK
     Dates: start: 20020101
  5. ZOFRAN [Concomitant]
  6. ACETAMINOPHEN [Concomitant]
  7. DARVOCET [Concomitant]
  8. YASMIN [Suspect]
     Indication: DYSMENORRHOEA

REACTIONS (4)
  - PULMONARY EMBOLISM [None]
  - DEEP VEIN THROMBOSIS [None]
  - PAIN [None]
  - THROMBOSIS [None]
